FAERS Safety Report 24041999 (Version 1)
Quarter: 2024Q3

REPORT INFORMATION
  Report Type: Spontaneous
  Country: US (occurrence: US)
  Receive Date: 20240702
  Receipt Date: 20240702
  Transmission Date: 20241017
  Serious: No
  Sender: FRESENIUS KABI
  Company Number: US-FreseniusKabi-FK202410134

PATIENT
  Age: 65 Year
  Sex: Male
  Weight: 127 kg

DRUGS (7)
  1. DILAUDID [Suspect]
     Active Substance: HYDROMORPHONE HYDROCHLORIDE
     Indication: Pain
     Dates: start: 20240514, end: 20240516
  2. VIVITROL [Suspect]
     Active Substance: NALTREXONE
     Indication: Alcoholism
     Dosage: ROUTE OF ADMIN-INTRAMUSCULAR-GLUTEAL ?RECENT DOSE OF WAS ON-10-JUN-2024?FORM OF ADMIN-INJECTION
     Route: 030
     Dates: start: 20240510
  3. VIVITROL [Suspect]
     Active Substance: NALTREXONE
     Dosage: ROUTE OF ADMIN-INTRAMUSCULAR-GLUTEAL ?RECENT DOSE OF WAS ON-10-JUN-2024
     Route: 030
     Dates: start: 20240610
  4. PERCOCET [Suspect]
     Active Substance: ACETAMINOPHEN\OXYCODONE HYDROCHLORIDE
     Indication: Pain
     Dates: start: 20240514, end: 20240516
  5. ASPIRIN [Concomitant]
     Active Substance: ASPIRIN
     Indication: Product used for unknown indication
  6. VITAMINS NOS [Concomitant]
     Active Substance: VITAMINS
     Indication: Product used for unknown indication
  7. TYLENOL [Concomitant]
     Active Substance: ACETAMINOPHEN
     Indication: Product used for unknown indication

REACTIONS (2)
  - Headache [Not Recovered/Not Resolved]
  - Nausea [Recovered/Resolved]

NARRATIVE: CASE EVENT DATE: 20240610
